FAERS Safety Report 6151835-9 (Version None)
Quarter: 2009Q2

REPORT INFORMATION
  Report Type: 
  Country: None (occurrence: None)
  Receive Date: 20090408
  Receipt Date: 20090330
  Transmission Date: 20091009
  Serious: Yes (Disabling)
  Sender: FDA-Public Use
  Company Number: 2008SP013314

PATIENT
  Age: 58 Year
  Sex: Female
  Weight: 80 kg

DRUGS (2)
  1. REBETOL [Suspect]
     Indication: HEPATITIS C
     Dosage: 1000
     Dates: start: 20050915, end: 20051116
  2. PEGASYS (PEGINTERFERON ALFA-2B) (180) [Suspect]
     Indication: HEPATITIS C
     Dosage: 180
     Dates: start: 20050915, end: 20051116

REACTIONS (5)
  - DERMATITIS [None]
  - ERYTHEMA NODOSUM [None]
  - HAEMOGLOBIN DECREASED [None]
  - PLATELET COUNT DECREASED [None]
  - WHITE BLOOD CELL COUNT DECREASED [None]
